FAERS Safety Report 6333456-8 (Version None)
Quarter: 2009Q3

REPORT INFORMATION
  Report Type: 
  Country: None (occurrence: None)
  Receive Date: 20090828
  Receipt Date: 20090820
  Transmission Date: 20100115
  Serious: Yes (Hospitalization)
  Sender: FDA-Public Use
  Company Number: PHHY2009CL35314

PATIENT
  Age: 80 Year
  Sex: Male

DRUGS (1)
  1. TAREG D [Suspect]
     Dosage: 2 TABLETS (160/12.5 MG) PER DAY

REACTIONS (2)
  - CHOLELITHIASIS [None]
  - GALLBLADDER OPERATION [None]
